FAERS Safety Report 20041409 (Version 2)
Quarter: 2021Q4

REPORT INFORMATION
  Report Type: Report from Study
  Country: CA (occurrence: CA)
  Receive Date: 20211108
  Receipt Date: 20211109
  Transmission Date: 20220303
  Serious: Yes (Other)
  Sender: FDA-Public Use
  Company Number: CA-JNJFOC-20211102343

PATIENT
  Age: 83 Year
  Sex: Female
  Weight: 73 kg

DRUGS (1)
  1. REMICADE [Suspect]
     Active Substance: INFLIXIMAB
     Indication: Crohn^s disease
     Dosage: ON 30-OCT-2021, THE PATIENT RECEIVED 61TH INFLIXIMAB INFUSION OF DOSE 400 MG AND PARTIAL HARVEY-BRAD
     Route: 042
     Dates: start: 20150926, end: 20211030

REACTIONS (7)
  - Neoplasm malignant [Unknown]
  - Haematochezia [Unknown]
  - Abdominal pain [Unknown]
  - Diarrhoea [Unknown]
  - Vomiting [Unknown]
  - General physical health deterioration [Unknown]
  - Therapeutic response decreased [Unknown]

NARRATIVE: CASE EVENT DATE: 20210601
